FAERS Safety Report 6164438-7 (Version None)
Quarter: 2009Q2

REPORT INFORMATION
  Report Type: 
  Country: None (occurrence: None)
  Receive Date: 20090422
  Receipt Date: 20090408
  Transmission Date: 20091009
  Serious: Yes (Life-Threatening)
  Sender: FDA-Public Use
  Company Number: US-BAUSCH-2009BL001575

PATIENT
  Age: 68 Year
  Sex: Female
  Weight: 88 kg

DRUGS (6)
  1. LOTEMAX [Suspect]
     Indication: EYE IRRITATION
     Route: 047
     Dates: start: 20090407, end: 20090407
  2. METHOTREXATE [Concomitant]
     Indication: PSORIATIC ARTHROPATHY
     Route: 030
     Dates: start: 20020101
  3. RELAFEN [Concomitant]
     Indication: PSORIATIC ARTHROPATHY
     Route: 048
  4. MULTI-VITAMINS [Concomitant]
  5. METHYLSULFONYLMETHANE [Concomitant]
  6. GRAPE SEED EXTRACT [Concomitant]

REACTIONS (4)
  - DIZZINESS [None]
  - ERYTHEMA [None]
  - FLUSHING [None]
  - THROAT TIGHTNESS [None]
